FAERS Safety Report 8269821-1 (Version None)
Quarter: 2012Q2

REPORT INFORMATION
  Report Type: 
  Country: None (occurrence: None)
  Receive Date: 20120406
  Receipt Date: 20120328
  Transmission Date: 20120825
  Serious: Yes (Hospitalization)
  Sender: FDA-Public Use
  Company Number: TPA2012A01744

PATIENT
  Age: 82 Year
  Sex: Male
  Weight: 66.2252 kg

DRUGS (5)
  1. LANOXIN [Concomitant]
  2. LASIX [Concomitant]
  3. COREG [Concomitant]
  4. ASTEPRO 0.15% (ALL OTHER THERAPEUTIC PRODUCTS) [Concomitant]
  5. DEXILANT [Suspect]
     Indication: GASTROOESOPHAGEAL REFLUX DISEASE
     Dosage: 60 MG, PER ORAL
     Route: 048
     Dates: end: 20110328

REACTIONS (6)
  - NASOPHARYNGITIS [None]
  - CONDITION AGGRAVATED [None]
  - DYSPNOEA [None]
  - CARDIAC FAILURE [None]
  - PULMONARY OEDEMA [None]
  - COUGH [None]
